FAERS Safety Report 6999479-0 (Version None)
Quarter: 2010Q3

REPORT INFORMATION
  Report Type: 
  Country: None (occurrence: None)
  Receive Date: 20100920
  Receipt Date: 20071116
  Transmission Date: 20110219
  Serious: Yes (Hospitalization, Other)
  Sender: FDA-Public Use
  Company Number: US-ASTRAZENECA-2006UW26090

PATIENT
  Age: 10945 Day
  Sex: Female
  Weight: 118.4 kg

DRUGS (7)
  1. SEROQUEL [Suspect]
     Indication: BIPOLAR I DISORDER
     Dosage: 50-100 MG EVERY NIGHT
     Route: 048
     Dates: start: 20030619
  2. SEROQUEL [Suspect]
     Indication: DEPRESSION
     Dosage: 50-100 MG EVERY NIGHT
     Route: 048
     Dates: start: 20030619
  3. TYLENOL [Concomitant]
     Indication: PAIN
     Dates: start: 20050217
  4. PAXIL [Concomitant]
     Dates: start: 20030619
  5. ALBUTEROL [Concomitant]
     Indication: ASTHMA
     Dosage: 2 PUFF AS AND WHEN REQUIRED
     Dates: start: 20030619
  6. PREDNISONE [Concomitant]
     Route: 048
     Dates: start: 20031021
  7. LEXAPRO [Concomitant]
     Dates: start: 20060203

REACTIONS (6)
  - DIABETES MELLITUS [None]
  - DIABETES MELLITUS INADEQUATE CONTROL [None]
  - DIABETIC KETOACIDOSIS [None]
  - DIABETIC NEUROPATHY [None]
  - GLYCOSURIA [None]
  - TYPE 1 DIABETES MELLITUS [None]
